FAERS Safety Report 5448435-2 (Version None)
Quarter: 2007Q3

REPORT INFORMATION
  Report Type: 
  Country: None (occurrence: None)
  Receive Date: 20070905
  Receipt Date: 20070821
  Transmission Date: 20080115
  Serious: Yes (Death)
  Sender: FDA-Public Use
  Company Number: 2007S1007826

PATIENT
  Age: 23 Year
  Sex: Male
  Weight: 54.4316 kg

DRUGS (3)
  1. CYCLOBENZAPRINE HYDROCHLORIDE [Suspect]
     Indication: NECK INJURY
     Dosage: 10 MG; TWICE A DAY; ORAL
     Route: 048
     Dates: start: 20070101, end: 20070101
  2. HYDROCODONE BITARTRATE AND ACETAMINOPHEN [Concomitant]
  3. NAPROXEN [Concomitant]

REACTIONS (2)
  - CARDIAC ARREST [None]
  - SUDDEN DEATH [None]
